FAERS Safety Report 8265462-0 (Version None)
Quarter: 2012Q2

REPORT INFORMATION
  Report Type: 
  Country: None (occurrence: None)
  Receive Date: 20120406
  Receipt Date: 20120402
  Transmission Date: 20120825
  Serious: Yes (Other)
  Sender: FDA-Public Use
  Company Number: FR-PFIZER INC-2012083554

PATIENT
  Age: 62 Year
  Sex: Female

DRUGS (1)
  1. ALDACTONE [Suspect]
     Indication: BLOOD PRESSURE
     Dosage: 50 MG, DAILY

REACTIONS (2)
  - WEIGHT INCREASED [None]
  - ALOPECIA [None]
